FAERS Safety Report 12797762 (Version 1)
Quarter: 2016Q3

REPORT INFORMATION
  Report Type: Report from Study
  Country: US (occurrence: US)
  Receive Date: 20160930
  Receipt Date: 20160930
  Transmission Date: 20161109
  Serious: Yes (Other)
  Sender: FDA-Public Use
  Company Number: US-ROCHE-1835388

PATIENT
  Age: 59 Year
  Sex: Female
  Weight: 118.3 kg

DRUGS (19)
  1. BEVACIZUMAB [Suspect]
     Active Substance: BEVACIZUMAB
     Dosage: COURSE ID 11
     Route: 042
     Dates: start: 20120807
  2. IXABEPILONE [Suspect]
     Active Substance: IXABEPILONE
     Dosage: COURSE ID 2
     Route: 042
     Dates: start: 20111228
  3. CARBOPLATIN. [Suspect]
     Active Substance: CARBOPLATIN
     Indication: ENDOMETRIAL CANCER
     Dosage: OVER 30 MINUTES
     Route: 042
  4. BEVACIZUMAB [Suspect]
     Active Substance: BEVACIZUMAB
     Dosage: COURSE ID 2
     Route: 042
     Dates: start: 20111228
  5. BEVACIZUMAB [Suspect]
     Active Substance: BEVACIZUMAB
     Dosage: COURSE ID 3
     Route: 042
     Dates: start: 20120117
  6. BEVACIZUMAB [Suspect]
     Active Substance: BEVACIZUMAB
     Dosage: COURSE ID 4
     Route: 042
     Dates: start: 20120207
  7. BEVACIZUMAB [Suspect]
     Active Substance: BEVACIZUMAB
     Dosage: COURSE ID 5
     Route: 042
     Dates: start: 20120228
  8. BEVACIZUMAB [Suspect]
     Active Substance: BEVACIZUMAB
     Indication: ENDOMETRIAL CANCER
     Dosage: OVER 30-90 MINUTES ON DAY 1?COURSE ID 1?LAST TREATMENT DATE: 05/SEP/2012
     Route: 042
     Dates: start: 20111206
  9. BEVACIZUMAB [Suspect]
     Active Substance: BEVACIZUMAB
     Dosage: COURSE ID 12
     Route: 042
     Dates: start: 20120905
  10. IXABEPILONE [Suspect]
     Active Substance: IXABEPILONE
     Dosage: COURSE ID 3
     Route: 042
     Dates: start: 20120117
  11. IXABEPILONE [Suspect]
     Active Substance: IXABEPILONE
     Dosage: COURSE ID 4
     Route: 042
     Dates: start: 20120207
  12. BEVACIZUMAB [Suspect]
     Active Substance: BEVACIZUMAB
     Dosage: COURSE ID 9
     Route: 042
     Dates: start: 20120523
  13. BEVACIZUMAB [Suspect]
     Active Substance: BEVACIZUMAB
     Dosage: COURSE ID 10
     Route: 042
     Dates: start: 20120612
  14. IXABEPILONE [Suspect]
     Active Substance: IXABEPILONE
     Indication: ENDOMETRIAL CANCER
     Dosage: OVER 1 HOUR?COURSE ID 1?LAST TREATMENT DATE: 05/SEP/2012
     Route: 042
     Dates: start: 20111206
  15. IXABEPILONE [Suspect]
     Active Substance: IXABEPILONE
     Dosage: COURSE ID 5
     Route: 042
     Dates: start: 20120228
  16. IXABEPILONE [Suspect]
     Active Substance: IXABEPILONE
     Dosage: COURSE ID 6
     Route: 042
     Dates: start: 20120320
  17. BEVACIZUMAB [Suspect]
     Active Substance: BEVACIZUMAB
     Dosage: COURSE ID 6
     Route: 042
     Dates: start: 20120320
  18. BEVACIZUMAB [Suspect]
     Active Substance: BEVACIZUMAB
     Dosage: COURSE ID 7
     Route: 042
     Dates: start: 20120410
  19. BEVACIZUMAB [Suspect]
     Active Substance: BEVACIZUMAB
     Dosage: COURSE ID 8
     Route: 042
     Dates: start: 20120502

REACTIONS (12)
  - Oedema peripheral [Unknown]
  - Pain [Unknown]
  - Bone pain [Unknown]
  - Hypoacusis [Unknown]
  - Hypertension [Unknown]
  - Hypothyroidism [Unknown]
  - Abdominal pain [Unknown]
  - Headache [Unknown]
  - Arthralgia [Unknown]
  - Pulmonary haemorrhage [Unknown]
  - Back pain [Unknown]
  - Neck pain [Unknown]
